FAERS Safety Report 6698601-3 (Version None)
Quarter: 2010Q2

REPORT INFORMATION
  Report Type: 
  Country: None (occurrence: None)
  Receive Date: 20100427
  Receipt Date: 20100415
  Transmission Date: 20101027
  Serious: Yes (Other)
  Sender: FDA-Public Use
  Company Number: US-PFIZER INC-2010048591

PATIENT
  Sex: Female

DRUGS (1)
  1. NEURONTIN [Suspect]
     Dosage: UNK

REACTIONS (6)
  - ANAPHYLACTIC SHOCK [None]
  - DYSGEUSIA [None]
  - DYSPNOEA [None]
  - GLOSSODYNIA [None]
  - GOITRE [None]
  - MALAISE [None]
